FAERS Safety Report 23005602 (Version 2)
Quarter: 2023Q4

REPORT INFORMATION
  Report Type: Spontaneous
  Country: US (occurrence: None)
  Receive Date: 20230929
  Receipt Date: 20231218
  Transmission Date: 20240110
  Serious: No
  Sender: FDA-Public Use
  Company Number: 2023A218276

PATIENT
  Sex: Female

DRUGS (1)
  1. SYMBICORT [Suspect]
     Active Substance: BUDESONIDE\FORMOTEROL FUMARATE DIHYDRATE
     Indication: Chronic obstructive pulmonary disease
     Dosage: 160 UG UNKNOWN; 160/4.5MCG, 120 INHALATIONS UNKNOWN
     Route: 055

REACTIONS (6)
  - Chronic obstructive pulmonary disease [Unknown]
  - Sinusitis [Unknown]
  - Dyspnoea [Unknown]
  - Product prescribing issue [Unknown]
  - Device issue [Unknown]
  - Device delivery system issue [Unknown]
